FAERS Safety Report 4564819-9 (Version None)
Quarter: 2005Q1

REPORT INFORMATION
  Report Type: 
  Country: None (occurrence: None)
  Receive Date: 20050128
  Receipt Date: 20041105
  Transmission Date: 20050727
  Serious: Yes (Other)
  Sender: FDA-Public Use
  Company Number: US-MERCK-0411USA00955

PATIENT
  Age: 66 Year
  Sex: Female
  Weight: 75 kg

DRUGS (8)
  1. VIOXX [Suspect]
     Indication: OSTEOARTHRITIS
     Route: 048
  2. PROVENTIL [Concomitant]
     Route: 065
  3. AZMACORT [Concomitant]
     Route: 065
  4. VIOXX [Suspect]
     Route: 048
     Dates: end: 20010101
  5. VIOXX [Suspect]
     Route: 048
     Dates: start: 20010101
  6. VIOXX [Suspect]
     Route: 048
  7. VIOXX [Suspect]
     Route: 048
  8. VIOXX [Suspect]
     Route: 048
     Dates: end: 20040930

REACTIONS (6)
  - ANGINA PECTORIS [None]
  - CHEST PAIN [None]
  - ELECTROCARDIOGRAM ABNORMAL [None]
  - MEDICATION ERROR [None]
  - NAUSEA [None]
  - NON-CARDIAC CHEST PAIN [None]
